FAERS Safety Report 7153675-0 (Version None)
Quarter: 2010Q4

REPORT INFORMATION
  Report Type: 
  Country: None (occurrence: None)
  Receive Date: 20101123
  Receipt Date: 20101012
  Transmission Date: 20110411
  Serious: No
  Sender: FDA-Public Use
  Company Number: 020321

PATIENT
  Sex: Male
  Weight: 100 kg

DRUGS (4)
  1. CIMZIA [Suspect]
     Indication: RHEUMATOID ARTHRITIS
     Dosage: (400 MG, INDUCTION DOSE SUBCUTANEOUS)
     Route: 058
     Dates: start: 20101009
  2. PREDNISONE [Concomitant]
  3. COLCHICINE [Concomitant]
  4. ALLOPURINOL [Concomitant]

REACTIONS (1)
  - RASH PRURITIC [None]
